FAERS Safety Report 13825872 (Version 2)
Quarter: 2017Q4

REPORT INFORMATION
  Report Type: Spontaneous
  Country: US (occurrence: US)
  Receive Date: 20170802
  Receipt Date: 20171005
  Transmission Date: 20180320
  Serious: Yes (Other)
  Sender: FDA-Public Use
  Company Number: US-MYLANLABS-2017M1045176

PATIENT
  Weight: 77 kg

DRUGS (1)
  1. ZOLPIDEM TARTRATE TABLETS, USP [Suspect]
     Active Substance: ZOLPIDEM TARTRATE
     Indication: INSOMNIA
     Dosage: UNK

REACTIONS (10)
  - Respiratory tract infection [Unknown]
  - Headache [Unknown]
  - Drug effect prolonged [Unknown]
  - Pulmonary oedema [Unknown]
  - Drug ineffective [Unknown]
  - Nausea [Unknown]
  - Depression [Unknown]
  - Heart rate increased [Unknown]
  - Respiratory disorder [Unknown]
  - Throat tightness [Unknown]
